FAERS Safety Report 17114685 (Version 14)
Quarter: 2024Q1

REPORT INFORMATION
  Report Type: Report from Study
  Country: JP (occurrence: JP)
  Receive Date: 20191205
  Receipt Date: 20240109
  Transmission Date: 20240410
  Serious: Yes (Death)
  Sender: FDA-Public Use
  Company Number: JP-ABBVIE-19K-087-3000069-00

PATIENT
  Age: 76 Year
  Sex: Female
  Weight: 40 kg

DRUGS (10)
  1. CARBIDOPA\LEVODOPA [Suspect]
     Active Substance: CARBIDOPA\LEVODOPA
     Indication: Parkinson^s disease
     Dosage: MD: 9.8 ML, CD: 2.5ML/HR ? 16 HRS, ED: 2 ML/UNIT ? 0
     Route: 050
     Dates: start: 20191019, end: 20200316
  2. CARBIDOPA\LEVODOPA [Suspect]
     Active Substance: CARBIDOPA\LEVODOPA
     Dosage: MD: 9.8 ML, CD: 2.7 ML/HR ? 16 HRS, ED: 2 ML/UNIT ? 1
     Route: 050
     Dates: start: 20200316, end: 20200902
  3. CARBIDOPA\LEVODOPA [Suspect]
     Active Substance: CARBIDOPA\LEVODOPA
     Dosage: MD: 6.5 ML, CD: 2.3 ML/HR A- 16 HRS, ED: 1 ML/UNIT A- 0
     Route: 050
     Dates: start: 20190912, end: 20191003
  4. CARBIDOPA\LEVODOPA [Suspect]
     Active Substance: CARBIDOPA\LEVODOPA
     Dosage: MD: 9.5 ML, CD: 2.3 ML/HR A- 16 HRS, ED: 2 ML/UNIT A- 0
     Route: 050
     Dates: start: 20191004, end: 20191018
  5. CARBIDOPA\LEVODOPA [Suspect]
     Active Substance: CARBIDOPA\LEVODOPA
     Dosage: MD: 9.8 ML, CD: 2.9 ML/HR ? 16 HRS, ED: 2 ML/UNIT ? 1
     Route: 050
     Dates: start: 20200902, end: 20201005
  6. CARBIDOPA\LEVODOPA [Suspect]
     Active Substance: CARBIDOPA\LEVODOPA
     Dosage: MD: 9.8 ML, CD: 3.2 ML/HR ? 16 HRS, ED: 2 ML/UNIT ? 1
     Route: 050
     Dates: start: 20201111, end: 20210312
  7. CARBIDOPA\LEVODOPA [Suspect]
     Active Substance: CARBIDOPA\LEVODOPA
     Dosage: MD: 9.8 ML, CD: 3.0 ML/HR ? 16 HRS, ED: 2 ML/UNIT ? 1
     Route: 050
     Dates: start: 20201005, end: 20201111
  8. RIVASTIGMINE [Concomitant]
     Active Substance: RIVASTIGMINE
     Indication: Product used for unknown indication
     Dosage: 18 MILLIGRAM
     Route: 062
  9. SENNOSIDES [Concomitant]
     Active Substance: SENNOSIDES
     Indication: Product used for unknown indication
     Route: 048
  10. LANSOPRAZOLE [Concomitant]
     Active Substance: LANSOPRAZOLE
     Indication: Product used for unknown indication
     Dosage: 15 MILLIGRAM
     Route: 048

REACTIONS (19)
  - Sepsis [Fatal]
  - Stoma site oedema [Recovering/Resolving]
  - Stoma site discharge [Recovered/Resolved]
  - Medical device site swelling [Recovering/Resolving]
  - Wrong technique in device usage process [Not Recovered/Not Resolved]
  - Stoma site erythema [Recovering/Resolving]
  - Stoma site haemorrhage [Recovered/Resolved]
  - Pyelonephritis [Unknown]
  - Glare [Unknown]
  - Injury [Unknown]
  - Condition aggravated [Unknown]
  - Fall [Unknown]
  - Malaise [Unknown]
  - Fatigue [Unknown]
  - Device dislocation [Unknown]
  - Stoma site discharge [Recovering/Resolving]
  - Stoma site hypergranulation [Recovered/Resolved]
  - Stoma site hypergranulation [Recovering/Resolving]
  - Device issue [Recovered/Resolved]

NARRATIVE: CASE EVENT DATE: 20191104
